FAERS Safety Report 6710335-5 (Version None)
Quarter: 2010Q2

REPORT INFORMATION
  Report Type: 
  Country: None (occurrence: None)
  Receive Date: 20100504
  Receipt Date: 20100422
  Transmission Date: 20101027
  Serious: Yes (Hospitalization, Other)
  Sender: FDA-Public Use
  Company Number: PHEH2010US03003

PATIENT
  Sex: Female

DRUGS (25)
  1. RECLAST [Suspect]
     Indication: OSTEOPOROSIS
     Dosage: 5 MG
     Dates: start: 20100305
  2. GLYBURIDE AND METFORMIN HCL [Concomitant]
     Dosage: 2.5-500 MG 1 PO QD
     Route: 048
  3. ZETIA [Concomitant]
     Dosage: 10 MG, QD
     Route: 048
  4. ZEGERID [Concomitant]
     Dosage: 40 MG, BID
     Route: 048
  5. PRAVACHOL [Concomitant]
     Dosage: 80 MG, QD
     Route: 048
  6. ALTACE [Concomitant]
     Dosage: 10 MG, QD
     Route: 048
  7. LEVOTHYROXINE SODIUM [Concomitant]
     Dosage: 50 UG, QD
     Route: 048
  8. MESALAZINE [Concomitant]
     Dosage: 1000 MG, TID ( 500 MG 2 PO TID)
     Route: 048
  9. CELEBREX [Concomitant]
     Dosage: 100 MG, QD
     Route: 048
  10. ASPIRIN [Concomitant]
     Dosage: 81 MG, QD
  11. VERAPAMIL HYDROCHLORIDE [Concomitant]
     Dosage: 300 MG, QHS
     Route: 048
  12. TRAZODONE HYDROCHLORIDE [Concomitant]
     Dosage: 50 MG AT HS
  13. SKELAXIN [Concomitant]
     Dosage: 800 MG TAKE ONE QID PRN
  14. LIDODERM [Concomitant]
     Dosage: 5 % USE AS DIRECTED ON 12 HOURS OFF 12 HOURS UPTO 3 PATCHES A DAY
  15. MAXALT-MLT [Concomitant]
     Dosage: 10 MG 1 TABLET AT ONSET OF HEADACHE AS NEEDED
  16. TRIAMCINOLONE ACETONIDE [Concomitant]
     Dosage: 0.1 % PRN
  17. NATURES TEARS [Concomitant]
  18. CALCIUM WITH VITAMIN D [Concomitant]
     Dosage: 600-200 MG-UNIT 1 PO QD
     Route: 048
  19. FLAXSEED OIL [Concomitant]
     Dosage: 1300 MG, BID
     Route: 048
  20. VITAMIN E [Concomitant]
     Dosage: 1000 UNIT 1 PO QHS
     Route: 048
  21. LECITHINUM SOYA [Concomitant]
     Dosage: 1200 MG, QHS
     Route: 048
  22. DOCUSATE SODIUM [Concomitant]
     Dosage: 100 MG, BID
     Route: 048
  23. HYALGAN [Concomitant]
     Route: 042
  24. GLUCOSE [Concomitant]
     Dosage: 2 TABLETS
  25. ANTIBIOTICS [Concomitant]

REACTIONS (12)
  - ABDOMINAL DISCOMFORT [None]
  - ABDOMINAL PAIN UPPER [None]
  - ABDOMINAL TENDERNESS [None]
  - BLOOD GLUCOSE DECREASED [None]
  - BLOOD PRESSURE INCREASED [None]
  - CHEST DISCOMFORT [None]
  - DRY SKIN [None]
  - FATIGUE [None]
  - GOITRE [None]
  - NAUSEA [None]
  - PANCREATITIS [None]
  - SKIN WARM [None]
